FAERS Safety Report 15353613 (Version 1)
Quarter: 2018Q3

REPORT INFORMATION
  Report Type: Spontaneous
  Country: BR (occurrence: BR)
  Receive Date: 20180905
  Receipt Date: 20180905
  Transmission Date: 20181010
  Serious: Yes (Other)
  Sender: FDA-Public Use
  Company Number: BR-BIOMARINAP-BR-2018-119686

PATIENT
  Age: 29 Year
  Sex: Male
  Weight: 57 kg

DRUGS (1)
  1. ALDURAZYME [Suspect]
     Active Substance: LARONIDASE
     Indication: MUCOPOLYSACCHARIDOSIS
     Dosage: 11 DOSAGE FORM, QOW
     Route: 041
     Dates: start: 20120101

REACTIONS (6)
  - Eye inflammation [Unknown]
  - Ulcerative keratitis [Unknown]
  - Eye infection [Unknown]
  - Glaucoma [Unknown]
  - Vision blurred [Unknown]
  - Intraocular pressure test abnormal [Unknown]

NARRATIVE: CASE EVENT DATE: 2017
